FAERS Safety Report 18141569 (Version 1)
Quarter: 2020Q3

REPORT INFORMATION
  Report Type: Spontaneous
  Country: DE (occurrence: DE)
  Receive Date: 20200812
  Receipt Date: 20200812
  Transmission Date: 20201103
  Serious: Yes (Other)
  Sender: FDA-Public Use
  Company Number: DE-ASTRAZENECA-2020SE97930

PATIENT
  Age: 16078 Day
  Sex: Female

DRUGS (5)
  1. EDOXABAN [Concomitant]
     Active Substance: EDOXABAN TOSYLATE
     Dosage: 30.0MG UNKNOWN
     Route: 065
     Dates: start: 2018
  2. LYNPARZA [Suspect]
     Active Substance: OLAPARIB
     Route: 048
     Dates: start: 201905
  3. CARBOPLATIN. [Concomitant]
     Active Substance: CARBOPLATIN
     Indication: DRUG HYPERSENSITIVITY
     Dates: start: 201902
  4. PACLITAXEL. [Concomitant]
     Active Substance: PACLITAXEL
     Indication: ANAPHYLACTIC SHOCK
     Dates: start: 2018
  5. EDOXABAN [Concomitant]
     Active Substance: EDOXABAN TOSYLATE
     Dosage: HALF DOSE UNKNOWN
     Route: 065

REACTIONS (11)
  - Coronavirus test negative [Unknown]
  - Malignant neoplasm progression [Unknown]
  - Hepatic cyst [Unknown]
  - Metastases to liver [Unknown]
  - Ovarian cancer [Unknown]
  - Nausea [Unknown]
  - Menorrhagia [Not Recovered/Not Resolved]
  - Body temperature abnormal [Recovered/Resolved]
  - Diarrhoea [Unknown]
  - Amenorrhoea [Not Recovered/Not Resolved]
  - Premenstrual pain [Unknown]

NARRATIVE: CASE EVENT DATE: 20200506
